FAERS Safety Report 8219297-5 (Version None)
Quarter: 2012Q1

REPORT INFORMATION
  Report Type: 
  Country: None (occurrence: None)
  Receive Date: 20120319
  Receipt Date: 20120311
  Transmission Date: 20120608
  Serious: Yes (Hospitalization)
  Sender: FDA-Public Use
  Company Number: US-US-EMD SERONO, INC.-7118834

PATIENT
  Sex: Female
  Weight: 73 kg

DRUGS (5)
  1. LEXAPRO [Concomitant]
     Indication: DEPRESSION
  2. BYSTOLIC [Concomitant]
     Indication: CENTRAL NERVOUS SYSTEM LESION
  3. UNSPECIFIED MEDICATION [Concomitant]
     Indication: SLEEP DISORDER
  4. REBIF [Suspect]
     Indication: MULTIPLE SCLEROSIS
     Route: 058
     Dates: start: 20090315
  5. KLONOPIN [Concomitant]
     Indication: ANXIETY

REACTIONS (5)
  - BLOOD SODIUM DECREASED [None]
  - DYSTONIA [None]
  - DYSURIA [None]
  - PAIN [None]
  - BLOOD POTASSIUM DECREASED [None]
